FAERS Safety Report 7047511-0 (Version None)
Quarter: 2010Q4

REPORT INFORMATION
  Report Type: 
  Country: None (occurrence: None)
  Receive Date: 20101015
  Receipt Date: 20101005
  Transmission Date: 20110411
  Serious: Yes (Other)
  Sender: FDA-Public Use
  Company Number: DK-PFIZER INC-2010128657

PATIENT

DRUGS (3)
  1. BLINDED *NO SUBJECT DRUG [Suspect]
     Indication: RENAL CELL CARCINOMA
  2. BLINDED *PLACEBO [Suspect]
     Indication: RENAL CELL CARCINOMA
  3. SUNITINIB MALATE [Suspect]
     Indication: RENAL CELL CARCINOMA

REACTIONS (1)
  - PNEUMONITIS [None]
